FAERS Safety Report 5442412-3 (Version None)
Quarter: 2007Q3

REPORT INFORMATION
  Report Type: 
  Country: None (occurrence: None)
  Receive Date: 20070829
  Receipt Date: 20070814
  Transmission Date: 20080115
  Serious: Yes (Hospitalization)
  Sender: FDA-Public Use
  Company Number: 2006US000554

PATIENT
  Age: 60 Year
  Sex: Male

DRUGS (15)
  1. PROGRAF [Suspect]
     Indication: PROPHYLAXIS AGAINST TRANSPLANT REJECTION
     Dosage: 5 MG, BID, ORAL
     Route: 048
     Dates: start: 20041106
  2. MYCOPHENOLATE MOFETIL [Suspect]
     Indication: PROPHYLAXIS AGAINST TRANSPLANT REJECTION
     Dosage: 500 MG, BID, ORAL
     Route: 048
     Dates: start: 20041103
  3. PREDNISONE TAB [Suspect]
     Indication: PROPHYLAXIS AGAINST TRANSPLANT REJECTION
     Dosage: 20 MG, UID/QD, ORAL
     Route: 048
     Dates: start: 20041103
  4. SIMULECT [Suspect]
     Indication: DRUG USE FOR UNKNOWN INDICATION
     Dosage: 20 ,UID/QD, IV NOS
     Route: 042
     Dates: start: 20041103, end: 20041106
  5. NYSTATIN [Concomitant]
  6. GLUCOTROL [Concomitant]
  7. BACTRIM [Concomitant]
  8. VALCYTE [Concomitant]
  9. CEFOXITIN (CEFOXITIN) [Concomitant]
  10. NEPHRO-VITE RX (ASCORBIC ACID, VITAMIN B NOS, FOLIC ACID) [Concomitant]
  11. FLUCONAZOLE [Concomitant]
  12. INSULIN, REGULAR (INSULIN) [Concomitant]
  13. LEVAQUIN [Concomitant]
  14. AMPICILLIN [Concomitant]
  15. HEPARIN [Concomitant]

REACTIONS (9)
  - ATRIAL FIBRILLATION [None]
  - COMPLICATIONS OF TRANSPLANTED KIDNEY [None]
  - HAEMATURIA [None]
  - HYPERTENSIVE CRISIS [None]
  - OLIGURIA [None]
  - PYELONEPHRITIS [None]
  - SEPSIS [None]
  - URINARY INCONTINENCE [None]
  - UROSTOMY COMPLICATION [None]
